FAERS Safety Report 10169291 (Version 1)
Quarter: 2014Q2

REPORT INFORMATION
  Report Type: Spontaneous
  Country: FR (occurrence: None)
  Receive Date: 20140509
  Receipt Date: 20140509
  Transmission Date: 20141212
  Serious: Yes (Hospitalization, Other)
  Sender: FDA-Public Use
  Company Number: 2319182

PATIENT
  Age: 57 Year
  Sex: Female

DRUGS (13)
  1. (CARBOPLATIN) [Suspect]
     Indication: LYMPHOMA
     Dates: start: 20140313
  2. (IFOSFAMIDE) [Suspect]
     Indication: LYMPHOMA
     Route: 042
     Dates: start: 20140313, end: 20140314
  3. UROMITEXAN [Suspect]
     Indication: PRODUCT USED FOR UNKNOWN INDICATION
     Dates: start: 20140313, end: 20140314
  4. ZOPHREN [Suspect]
     Indication: PREMEDICATION
     Dosage: 1 DF
     Route: 042
     Dates: start: 20140312, end: 20140314
  5. ETOPOSIDE [Suspect]
     Indication: LYMPHOMA
     Route: 042
     Dates: start: 20140312, end: 20140314
  6. (MABTHERA) [Concomitant]
  7. (VALACICLOVIR) [Concomitant]
  8. (ESOMEPRAZOLE) [Concomitant]
  9. (ORACILLINE) [Concomitant]
  10. (SULFAMETHOXAZOLE AND TRIMETHOPRIM) [Concomitant]
  11. (LEVETIRACETAM) [Concomitant]
  12. (METHYLPREDNISOLONE) [Concomitant]
  13. (ALIZAPRIDE) [Concomitant]

REACTIONS (9)
  - Somnolence [None]
  - Depressed level of consciousness [None]
  - Perseveration [None]
  - Neurotoxicity [None]
  - Cystitis haemorrhagic [None]
  - Aplasia [None]
  - Drug ineffective [None]
  - Lung infection [None]
  - Pseudomonas infection [None]
